FAERS Safety Report 11705264 (Version 3)
Quarter: 2016Q1

REPORT INFORMATION
  Report Type: Spontaneous
  Country: US (occurrence: US)
  Receive Date: 20151106
  Receipt Date: 20160203
  Transmission Date: 20160525
  Serious: Yes (Other)
  Sender: FDA-Public Use
  Company Number: US-BEH-2015055349

PATIENT
  Sex: Male
  Weight: 72 kg

DRUGS (13)
  1. SUCRALFATE. [Concomitant]
     Active Substance: SUCRALFATE
  2. NITROSTAT [Concomitant]
     Active Substance: NITROGLYCERIN
  3. ASPIRIN. [Concomitant]
     Active Substance: ASPIRIN
  4. EPIPEN [Concomitant]
     Active Substance: EPINEPHRINE
  5. IMODIUM [Concomitant]
     Active Substance: LOPERAMIDE HYDROCHLORIDE
  6. HIZENTRA [Suspect]
     Active Substance: HUMAN IMMUNOGLOBULIN G
     Route: 058
     Dates: start: 20110314
  7. HIZENTRA [Suspect]
     Active Substance: HUMAN IMMUNOGLOBULIN G
     Indication: IMMUNODEFICIENCY COMMON VARIABLE
     Dosage: ??-MAR-2011
     Route: 058
  8. FUROSEMIDE. [Concomitant]
     Active Substance: FUROSEMIDE
  9. CENTRUM [Concomitant]
     Active Substance: VITAMINS
  10. HIZENTRA [Suspect]
     Active Substance: HUMAN IMMUNOGLOBULIN G
     Dosage: 4 GM 20 ML VIALS
     Route: 058
  11. SIMVASTATIN. [Concomitant]
     Active Substance: SIMVASTATIN
  12. DIPHENHYDRAMINE. [Concomitant]
     Active Substance: DIPHENHYDRAMINE
  13. LIDOCAINE/PRILOCAINE [Concomitant]

REACTIONS (1)
  - Localised intraabdominal fluid collection [Unknown]
